FAERS Safety Report 9534810 (Version 2)
Quarter: 2013Q3

REPORT INFORMATION
  Report Type: Spontaneous
  Country: FR (occurrence: FR)
  Receive Date: 20130918
  Receipt Date: 20130918
  Transmission Date: 20140515
  Serious: Yes (Death, Other)
  Sender: FDA-Public Use
  Company Number: FR-PFIZER INC-FR-WYE-G02916509

PATIENT
  Age: 70 Year
  Sex: Male

DRUGS (9)
  1. EFFEXOR [Suspect]
     Dosage: 75 MG, 2X/DAY
     Route: 048
     Dates: end: 20080221
  2. FARMORUBICIN [Suspect]
     Dosage: 90 MG, CYCLIC
     Route: 042
     Dates: start: 20080208, end: 20080208
  3. CADUET [Suspect]
     Dosage: 1 DF, 1X/DAY
     Route: 048
     Dates: end: 20080219
  4. ELOXATINE [Suspect]
     Indication: METASTATIC GASTRIC CANCER
     Dosage: 234 MG, CYCLIC
     Route: 042
     Dates: start: 20080208, end: 20080208
  5. XELODA [Suspect]
     Indication: METASTATIC GASTRIC CANCER
     Dosage: 2300 MG, UNK
     Route: 048
     Dates: start: 20080208, end: 20080220
  6. GRANOCYTE [Suspect]
     Dosage: 33.6 MILLIONS IU/1 ML, 1X/DAY
     Route: 058
     Dates: start: 20080210, end: 20080212
  7. SOLU-MEDROL [Concomitant]
     Dosage: UNK
     Dates: start: 20080208
  8. PRIMPERAN [Concomitant]
     Dosage: UNK
     Dates: start: 20080208
  9. ZOPHREN [Concomitant]
     Dosage: UNK
     Dates: start: 20080208

REACTIONS (4)
  - Renal failure acute [Fatal]
  - Cholangitis [Unknown]
  - Biliary tract infection bacterial [Unknown]
  - Haemophilus infection [Unknown]
